FAERS Safety Report 14131785 (Version 1)
Quarter: 2017Q4

REPORT INFORMATION
  Report Type: Other
  Country: DE (occurrence: DE)
  Receive Date: 20171026
  Receipt Date: 20171026
  Transmission Date: 20180321
  Serious: Yes (Other)
  Sender: FDA-Public Use
  Company Number: DE-HIKMA PHARMACEUTICALS CO. LTD-2017DE014571

PATIENT

DRUGS (1)
  1. INFLECTRA [Suspect]
     Active Substance: INFLIXIMAB-DYYB
     Indication: CROHN^S DISEASE
     Dosage: 300 MG, UNK
     Route: 042
     Dates: start: 201705, end: 20170808

REACTIONS (7)
  - Hypertension [Recovered/Resolved]
  - Tachycardia [Recovered/Resolved]
  - Hypersensitivity [Recovered/Resolved]
  - Erythema [Recovered/Resolved]
  - Flushing [Recovered/Resolved]
  - Respiratory distress [Recovered/Resolved]
  - Pruritus [Recovered/Resolved]

NARRATIVE: CASE EVENT DATE: 20170808
